FAERS Safety Report 24273791 (Version 1)
Quarter: 2024Q3

REPORT INFORMATION
  Report Type: Spontaneous
  Country: US (occurrence: US)
  Receive Date: 20240902
  Receipt Date: 20240902
  Transmission Date: 20241016
  Serious: No
  Sender: ASTELLAS
  Company Number: US-ASTELLAS-2024US008220

PATIENT
  Age: 62 Year
  Sex: Male

DRUGS (5)
  1. ENFORTUMAB VEDOTIN [Suspect]
     Active Substance: ENFORTUMAB VEDOTIN
     Indication: Lung cancer metastatic
     Dosage: 1.25 MG, CYCLIC (ON DAY 1, 8 AND 15 OF 28 DAY CYCLE)
     Route: 042
     Dates: start: 20231025
  2. AMLODIPINE [Concomitant]
     Active Substance: AMLODIPINE BESYLATE
     Indication: Hypertension
     Dosage: 2.5 MG, ONCE DAILY
     Route: 048
     Dates: start: 202301
  3. LOPRESSOR [Concomitant]
     Active Substance: METOPROLOL TARTRATE
     Indication: Hypertension
     Dosage: 25 MG, TWICE DAILY
     Route: 048
     Dates: start: 202301
  4. POTASSIUM [Concomitant]
     Active Substance: POTASSIUM
     Indication: Supplementation therapy
     Dosage: 20 MEQ, ONCE DAILY
     Route: 048
     Dates: start: 202312
  5. ELIQUIS [Concomitant]
     Active Substance: APIXABAN
     Indication: Coagulopathy
     Dosage: 5 MG, TWICE DAILY
     Route: 048
     Dates: start: 202307

REACTIONS (7)
  - Dry eye [Recovering/Resolving]
  - Seasonal allergy [Unknown]
  - Ocular hyperaemia [Recovering/Resolving]
  - Swelling of eyelid [Recovering/Resolving]
  - Platelet count decreased [Not Recovered/Not Resolved]
  - Haemoglobin decreased [Not Recovered/Not Resolved]
  - Off label use [Not Recovered/Not Resolved]

NARRATIVE: CASE EVENT DATE: 20231025
